FAERS Safety Report 22180089 (Version 1)
Quarter: 2023Q2

REPORT INFORMATION
  Report Type: Other
  Country: MX (occurrence: None)
  Receive Date: 20230406
  Receipt Date: 20230406
  Transmission Date: 20230721
  Serious: Yes (Death, Hospitalization)
  Sender: FDA-Public Use
  Company Number: MX-ROCHE-3319802

PATIENT
  Age: 81 Year
  Sex: Female

DRUGS (1)
  1. TOCILIZUMAB [Suspect]
     Active Substance: TOCILIZUMAB
     Indication: Rheumatoid arthritis
     Dosage: TOCILIZUMAB PREFILLED SYRINGES 162MG/0.9ML
     Route: 058
     Dates: start: 20200321, end: 202210

REACTIONS (9)
  - Malignant neoplasm of spinal cord [Fatal]
  - White blood cell count increased [Unknown]
  - Spinal cord infection [Unknown]
  - Renal failure [Unknown]
  - Pyrexia [Not Recovered/Not Resolved]
  - Off label use [Unknown]
  - Red blood cell count decreased [Unknown]
  - Platelet count decreased [Unknown]
  - Device related infection [Recovered/Resolved]

NARRATIVE: CASE EVENT DATE: 20221228
